FAERS Safety Report 25736948 (Version 3)
Quarter: 2025Q4

REPORT INFORMATION
  Report Type: Spontaneous
  Country: CA (occurrence: CA)
  Receive Date: 20250828
  Receipt Date: 20251023
  Transmission Date: 20260117
  Serious: No
  Sender: PFIZER
  Company Number: CA-PFIZER INC-202200611053

PATIENT
  Age: 4 Year
  Sex: Female

DRUGS (6)
  1. SOMATROPIN [Suspect]
     Active Substance: SOMATROPIN
     Indication: Prader-Willi syndrome
     Dosage: 0.2 MG, 7 TIMES A WEEK
     Route: 058
     Dates: start: 20220421, end: 2023
  2. SOMATROPIN [Suspect]
     Active Substance: SOMATROPIN
     Dosage: 0.25 MG, 7 TIMES A WEEK
     Route: 058
     Dates: start: 2023
  3. SOMATROPIN [Suspect]
     Active Substance: SOMATROPIN
     Dosage: 300 UG, 7 TIMES A WEEK
     Route: 058
  4. SOMATROPIN [Suspect]
     Active Substance: SOMATROPIN
     Dosage: 350 UG, 7 TIMES A WEEK
     Route: 058
  5. SOMATROPIN [Suspect]
     Active Substance: SOMATROPIN
     Dosage: 0.3 MG, DAILY
  6. CHOLECALCIFEROL [Concomitant]
     Active Substance: CHOLECALCIFEROL
     Dosage: UNK

REACTIONS (1)
  - Headache [Unknown]

NARRATIVE: CASE EVENT DATE: 20250101
